FAERS Safety Report 6816942-3 (Version None)
Quarter: 2010Q2

REPORT INFORMATION
  Report Type: 
  Country: None (occurrence: None)
  Receive Date: 20100630
  Receipt Date: 20100621
  Transmission Date: 20101027
  Serious: Yes (Hospitalization)
  Sender: FDA-Public Use
  Company Number: TPH-00266

PATIENT
  Age: 38 Year
  Sex: Female

DRUGS (2)
  1. TRIQUILAR [Suspect]
     Indication: DYSMENORRHOEA
     Dosage: DF ORAL
     Route: 048
     Dates: start: 20100401, end: 20100605
  2. TRIQUILAR [Suspect]
     Indication: ENDOMETRIOSIS
     Dosage: DF ORAL
     Route: 048
     Dates: start: 20100401, end: 20100605

REACTIONS (3)
  - DIABETES MELLITUS [None]
  - OEDEMA [None]
  - WEIGHT DECREASED [None]
